FAERS Safety Report 5751589-1 (Version None)
Quarter: 2008Q2

REPORT INFORMATION
  Report Type: 
  Country: None (occurrence: None)
  Receive Date: 20080528
  Receipt Date: 20080519
  Transmission Date: 20081010
  Serious: Yes (Other)
  Sender: FDA-Public Use
  Company Number: PHHY2008NZ08459

PATIENT
  Sex: Male

DRUGS (2)
  1. COMTAN [Suspect]
  2. SINEMET CR [Concomitant]

REACTIONS (5)
  - CEREBROVASCULAR ACCIDENT [None]
  - CONDITION AGGRAVATED [None]
  - DYSPHONIA [None]
  - FEEDING DISORDER [None]
  - MUSCULOSKELETAL STIFFNESS [None]
